FAERS Safety Report 24768914 (Version 2)
Quarter: 2024Q4

REPORT INFORMATION
  Report Type: Spontaneous
  Country: JP (occurrence: JP)
  Receive Date: 20241224
  Receipt Date: 20241227
  Transmission Date: 20250115
  Serious: No
  Sender: AMGEN
  Company Number: JP-KYOWAKIRIN-2024KK028233

PATIENT

DRUGS (1)
  1. DARBEPOETIN ALFA [Suspect]
     Active Substance: DARBEPOETIN ALFA
     Indication: Myelodysplastic syndrome
     Dosage: 240 UG, 1X/WEEK, TWO SYRINGES OF NESP INJECTION 120 MICROGRAMS PLASTIC SYRINGE
     Route: 058

REACTIONS (1)
  - No adverse event [Unknown]
